FAERS Safety Report 10518447 (Version 1)
Quarter: 2014Q4

REPORT INFORMATION
  Report Type: Spontaneous
  Country: IN (occurrence: IN)
  Receive Date: 20141015
  Receipt Date: 20141015
  Transmission Date: 20150528
  Serious: Yes (Death, Other)
  Sender: FDA-Public Use
  Company Number: IN-JNJFOC-20141004355

PATIENT

DRUGS (6)
  1. BLEOMYCIN [Suspect]
     Active Substance: BLEOMYCIN SULFATE
     Indication: HODGKIN^S DISEASE
     Dosage: DAY 1 AND 15
     Route: 065
  2. DACARBAZINE. [Suspect]
     Active Substance: DACARBAZINE
     Indication: HODGKIN^S DISEASE
     Dosage: REPEATED ON DAY 29
     Route: 065
  3. GRANULOCYTE COLONY-STIMULATING FACTOR [Suspect]
     Active Substance: GRANULOCYTE COLONY-STIMULATING FACTOR NOS
     Indication: PRODUCT USED FOR UNKNOWN INDICATION
     Dosage: ADMINISTERED IF CLINICALLY INDICATED, STARTING FROM DAY 7 OR 21.
     Route: 065
  4. DOXORUBICIN [Suspect]
     Active Substance: DOXORUBICIN
     Indication: HODGKIN^S DISEASE
     Dosage: DAY 1 AND 15
     Route: 042
  5. RADIOTHERAPY [Suspect]
     Active Substance: RADIATION THERAPY
     Indication: HODGKIN^S DISEASE
     Dosage: ADMINISTERED IF CLINICALLY INDICATED, STARTING FROM DAY 7 OR 21.
     Route: 065
  6. VINBLASTINE [Suspect]
     Active Substance: VINBLASTINE
     Indication: HODGKIN^S DISEASE
     Route: 065

REACTIONS (4)
  - Pulmonary toxicity [Fatal]
  - Neutropenia [Unknown]
  - White blood cell disorder [Unknown]
  - Mucosal inflammation [Unknown]
